FAERS Safety Report 8960102 (Version 1)
Quarter: 2012Q4

REPORT INFORMATION
  Report Type: 
  Country: JP (occurrence: JP)
  Receive Date: 20121211
  Receipt Date: 20121211
  Transmission Date: 20130627
  Serious: Yes (Hospitalization, Disabling)
  Sender: FDA-Public Use
  Company Number: JP-GLAXOSMITHKLINE-B0800919A

PATIENT
  Age: 74 None
  Sex: Male
  Weight: 58 kg

DRUGS (9)
  1. HEPSERA [Suspect]
     Indication: CHRONIC HEPATITIS B
     Dosage: 10MG Per day
     Route: 048
     Dates: start: 20041024, end: 20110818
  2. HEPSERA [Suspect]
     Indication: CHRONIC HEPATITIS B
     Dosage: 10MG Per day
     Route: 048
     Dates: start: 20110819
  3. ZEFIX [Suspect]
     Indication: CHRONIC HEPATITIS B
     Dosage: 100MG Per day
     Route: 048
     Dates: start: 19960803, end: 20110818
  4. ZEFIX [Suspect]
     Indication: CHRONIC HEPATITIS B
     Dosage: 100MG Per day
     Route: 048
     Dates: start: 20110819
  5. BLOPRESS [Concomitant]
     Route: 048
  6. ALINAMIN-F [Concomitant]
     Route: 065
  7. METHYCOBAL [Concomitant]
     Route: 065
  8. FLIVAS [Concomitant]
     Route: 048
  9. CERNILTON [Concomitant]
     Route: 048

REACTIONS (16)
  - Hypophosphataemia [Recovering/Resolving]
  - Osteomalacia [Unknown]
  - Gait disturbance [Unknown]
  - Asthenia [Unknown]
  - Pain in extremity [Unknown]
  - Muscular weakness [Recovering/Resolving]
  - Blood creatinine increased [Unknown]
  - Muscular weakness [Recovering/Resolving]
  - Arthralgia [Recovering/Resolving]
  - Bone density decreased [Unknown]
  - Blood alkaline phosphatase increased [Unknown]
  - Blood phosphorus decreased [Recovered/Resolved]
  - Aminoaciduria [Unknown]
  - Protein urine [Unknown]
  - Glucose urine present [Unknown]
  - Fracture [Unknown]
